FAERS Safety Report 24056179 (Version 1)
Quarter: 2024Q3

REPORT INFORMATION
  Report Type: Spontaneous
  Country: US (occurrence: None)
  Receive Date: 20240704
  Receipt Date: 20240704
  Transmission Date: 20241017
  Serious: Yes (Death)
  Sender: Public
  Company Number: None

PATIENT
  Age: 44 Year
  Sex: Male
  Weight: 73.5 kg

DRUGS (1)
  1. CISPLATIN [Suspect]
     Active Substance: CISPLATIN
     Dates: end: 20240625

REACTIONS (9)
  - Cough [None]
  - Tumour haemorrhage [None]
  - Tachycardia [None]
  - White blood cell count increased [None]
  - Blood sodium decreased [None]
  - Blood glucose increased [None]
  - Haematemesis [None]
  - Cardio-respiratory arrest [None]
  - Red blood cell transfusion [None]

NARRATIVE: CASE EVENT DATE: 20240626
